FAERS Safety Report 23551620 (Version 9)
Quarter: 2025Q2

REPORT INFORMATION
  Report Type: Spontaneous
  Country: US (occurrence: US)
  Receive Date: 20240222
  Receipt Date: 20250513
  Transmission Date: 20250717
  Serious: No
  Sender: JOHNSON AND JOHNSON
  Company Number: US-VIIV HEALTHCARE LIMITED-US2024AMR021607

PATIENT
  Age: 34 Year
  Sex: Female

DRUGS (4)
  1. RILPIVIRINE [Suspect]
     Active Substance: RILPIVIRINE
     Indication: HIV infection
     Route: 065
     Dates: start: 20240201
  2. RILPIVIRINE [Suspect]
     Active Substance: RILPIVIRINE
     Route: 065
     Dates: start: 20240209
  3. CABOTEGRAVIR [Suspect]
     Active Substance: CABOTEGRAVIR
     Indication: HIV infection
     Route: 065
     Dates: start: 20240201
  4. CABOTEGRAVIR [Suspect]
     Active Substance: CABOTEGRAVIR
     Route: 065
     Dates: start: 20240209

REACTIONS (10)
  - Injection site pain [Unknown]
  - Nasopharyngitis [Recovering/Resolving]
  - Respiratory tract congestion [Recovering/Resolving]
  - Fatigue [Recovered/Resolved]
  - Dizziness [Not Recovered/Not Resolved]
  - Pyrexia [Not Recovered/Not Resolved]
  - Migraine [Recovering/Resolving]
  - Aphonia [Not Recovered/Not Resolved]
  - Arthralgia [Not Recovered/Not Resolved]
  - Headache [Not Recovered/Not Resolved]

NARRATIVE: CASE EVENT DATE: 20240209
